FAERS Safety Report 6173838-0 (Version None)
Quarter: 2009Q2

REPORT INFORMATION
  Report Type: 
  Country: None (occurrence: None)
  Receive Date: 20090430
  Receipt Date: 20090428
  Transmission Date: 20091009
  Serious: Yes (Hospitalization)
  Sender: FDA-Public Use
  Company Number: US-B.I. PHARMACEUTICALS,INC./RIDGEFIELD-2009-BP-05290BP

PATIENT
  Age: 70 Year
  Sex: Male

DRUGS (3)
  1. CATAPRES [Suspect]
     Indication: HYPERTENSION
     Dosage: .05MG
     Route: 048
     Dates: start: 20080101
  2. ZENTANL [Concomitant]
     Indication: HYPERTENSION
     Route: 048
  3. SYNTHROID [Concomitant]
     Indication: HYPERTHYROIDISM
     Route: 048

REACTIONS (1)
  - URINARY RETENTION [None]
